FAERS Safety Report 17030293 (Version 1)
Quarter: 2019Q4

REPORT INFORMATION
  Report Type: Spontaneous
  Country: CA (occurrence: CA)
  Receive Date: 20191114
  Receipt Date: 20191114
  Transmission Date: 20200122
  Serious: Yes (Life-Threatening, Hospitalization, Other)
  Sender: FDA-Public Use
  Company Number: CA-PFIZER INC-2019486034

PATIENT
  Age: 39 Year
  Sex: Male
  Weight: 84 kg

DRUGS (3)
  1. AVASTIN [Interacting]
     Active Substance: BEVACIZUMAB
     Indication: CHEMOTHERAPY
     Dosage: 10 MG/KG, (1 EVERY 14 DAYS)
     Route: 042
  2. CAMPTOSAR [Suspect]
     Active Substance: IRINOTECAN HYDROCHLORIDE
     Dosage: 125 MG, (1 EVERY 14 DAYS)
     Route: 042
  3. DEXAMETHASONE. [Concomitant]
     Active Substance: DEXAMETHASONE
     Dosage: UNK

REACTIONS (2)
  - Drug interaction [Unknown]
  - Staphylococcal infection [Unknown]
